FAERS Safety Report 8462330-6 (Version None)
Quarter: 2012Q2

REPORT INFORMATION
  Report Type: 
  Country: None (occurrence: None)
  Receive Date: 20120625
  Receipt Date: 20120618
  Transmission Date: 20120825
  Serious: Yes (Hospitalization)
  Sender: FDA-Public Use
  Company Number: FR-PFIZER INC-2012146162

PATIENT
  Age: 60 Year
  Sex: Female

DRUGS (5)
  1. CYTARABINE [Suspect]
     Indication: ACUTE MYELOID LEUKAEMIA
     Dosage: 200 MG/M2, ON DAY 1
     Dates: start: 20111128
  2. CYTARABINE [Suspect]
     Dosage: UNK
     Dates: start: 20120302, end: 20120307
  3. CYTARABINE [Suspect]
     Dosage: 50 MG/M2, UNK
     Route: 058
     Dates: start: 20120123, end: 20120130
  4. DAUNORUBICIN [Concomitant]
     Dosage: 30 MG/M2, UNK
     Route: 058
     Dates: start: 20120123, end: 20120130
  5. DAUNORUBICIN [Concomitant]
     Indication: ACUTE MYELOID LEUKAEMIA
     Dosage: 60 MG/M2, ON DAY 1
     Dates: start: 20111128

REACTIONS (2)
  - CYTOLYTIC HEPATITIS [None]
  - CHOLESTASIS [None]
